FAERS Safety Report 14505179 (Version 1)
Quarter: 2018Q1

REPORT INFORMATION
  Report Type: Spontaneous
  Country: FR (occurrence: FR)
  Receive Date: 20180208
  Receipt Date: 20180208
  Transmission Date: 20180509
  Serious: Yes (Life-Threatening, Hospitalization)
  Sender: FDA-Public Use
  Company Number: FR-PFIZER INC-2018051345

PATIENT
  Age: 13 Year
  Sex: Male
  Weight: 41 kg

DRUGS (1)
  1. ADVIL [Suspect]
     Active Substance: IBUPROFEN
     Indication: PYREXIA
     Dosage: 1 DF, AS NEEDED
     Route: 048
     Dates: start: 20171230, end: 20180103

REACTIONS (7)
  - Sinusitis [Recovered/Resolved]
  - Encephalitis [Recovering/Resolving]
  - Deep vein thrombosis [Recovering/Resolving]
  - Condition aggravated [Recovered/Resolved]
  - Seizure [Recovered/Resolved]
  - Hemiplegia [Recovering/Resolving]
  - Brain empyema [Recovered/Resolved]

NARRATIVE: CASE EVENT DATE: 20180104
